FAERS Safety Report 10065610 (Version 2)
Quarter: 2014Q2

REPORT INFORMATION
  Report Type: Spontaneous
  Country: PL (occurrence: PL)
  Receive Date: 20140408
  Receipt Date: 20140423
  Transmission Date: 20141212
  Serious: Yes (Other)
  Sender: FDA-Public Use
  Company Number: PL-BAXTER-2014BAX016657

PATIENT
  Age: 65 Year
  Sex: Female

DRUGS (4)
  1. ENDOXAN [Suspect]
     Indication: GRANULOMATOSIS WITH POLYANGIITIS
     Route: 065
  2. METHYLPREDNISOLONE [Suspect]
     Indication: GRANULOMATOSIS WITH POLYANGIITIS
     Dosage: OVER 3 DAYS
     Route: 042
  3. ENCORTON [Suspect]
     Indication: GRANULOMATOSIS WITH POLYANGIITIS
     Route: 048
  4. ENCORTON [Suspect]
     Route: 048

REACTIONS (1)
  - Drug ineffective [Not Recovered/Not Resolved]
